FAERS Safety Report 5113894-1 (Version None)
Quarter: 2006Q3

REPORT INFORMATION
  Report Type: 
  Country: None (occurrence: None)
  Receive Date: 20060925
  Receipt Date: 19940613
  Transmission Date: 20061208
  Serious: Yes (Hospitalization)
  Sender: FDA-Public Use
  Company Number: NO-ROCHE-940194011001

PATIENT
  Age: 42 Year
  Sex: Male
  Weight: 75 kg

DRUGS (2)
  1. INTERFERON ALFA-2A [Suspect]
     Indication: MULTIPLE SCLEROSIS
     Route: 058
     Dates: start: 19940427
  2. GADOPENTETIC ACID [Concomitant]
     Indication: MULTIPLE SCLEROSIS
     Route: 042
     Dates: start: 19950103

REACTIONS (7)
  - ABASIA [None]
  - CONDITION AGGRAVATED [None]
  - COORDINATION ABNORMAL [None]
  - DISEASE PROGRESSION [None]
  - MOTOR DYSFUNCTION [None]
  - MUSCLE SPASTICITY [None]
  - SENSORY DISTURBANCE [None]
